FAERS Safety Report 16587710 (Version 1)
Quarter: 2019Q3

REPORT INFORMATION
  Report Type: Spontaneous
  Country: FR (occurrence: FR)
  Receive Date: 20190717
  Receipt Date: 20190717
  Transmission Date: 20191004
  Serious: Yes (Other)
  Sender: FDA-Public Use
  Company Number: FR-GLAXOSMITHKLINE-FR2019127196

PATIENT
  Age: 49 Year
  Sex: Female
  Weight: 90 kg

DRUGS (3)
  1. LEVOTHYROXIN [Suspect]
     Active Substance: LEVOTHYROXINE
     Indication: SUICIDE ATTEMPT
     Dosage: IN TOTAL
     Route: 048
     Dates: start: 20180810, end: 20180810
  2. VENTOLINE [Suspect]
     Active Substance: ALBUTEROL
     Indication: SUICIDE ATTEMPT
     Dosage: UNK
     Route: 055
     Dates: start: 20180810, end: 20180810
  3. PARACETAMOL [Suspect]
     Active Substance: ACETAMINOPHEN
     Indication: SUICIDE ATTEMPT
     Dosage: IN TOTAL
     Route: 048
     Dates: start: 20180810, end: 20180810

REACTIONS (5)
  - Thyroid hormones increased [Recovered/Resolved]
  - Analgesic drug level increased [Recovered/Resolved]
  - Poisoning deliberate [Recovered/Resolved]
  - Suicide attempt [Unknown]
  - Blood thyroid stimulating hormone decreased [Recovered/Resolved]

NARRATIVE: CASE EVENT DATE: 20180810
